FAERS Safety Report 6143930-5 (Version None)
Quarter: 2009Q2

REPORT INFORMATION
  Report Type: 
  Country: None (occurrence: None)
  Receive Date: 20090406
  Receipt Date: 20090325
  Transmission Date: 20091009
  Serious: Yes (Hospitalization)
  Sender: FDA-Public Use
  Company Number: FR-PFIZER INC-2008152943

PATIENT

DRUGS (11)
  1. MARAVIROC [Suspect]
     Dosage: 150 MG, 2X/DAY
     Route: 048
     Dates: start: 20080114
  2. DARUNAVIR [Concomitant]
     Dosage: UNK
     Route: 048
     Dates: start: 20060427
  3. RITONAVIR [Concomitant]
     Dosage: UNK
     Route: 048
     Dates: start: 20060427
  4. RALTEGRAVIR [Concomitant]
     Dosage: UNK
     Route: 048
     Dates: start: 20080114
  5. ABACAVIR/LAMIVUDINE [Concomitant]
     Dosage: UNK
     Route: 048
     Dates: start: 20051219
  6. ETRAVIRINE [Concomitant]
     Dosage: UNK
     Route: 048
     Dates: start: 20080114
  7. HYDROXYZINE HYDROCHLORIDE [Concomitant]
     Dosage: UNK
     Route: 048
     Dates: start: 20080901
  8. LORAZEPAM [Concomitant]
     Route: 048
     Dates: start: 20080927, end: 20081202
  9. ZOLPIDEM TARTRATE [Concomitant]
     Route: 048
     Dates: start: 20080927, end: 20081202
  10. SULFAMETHOXAZOLE AND TRIMETHOPRIM [Concomitant]
     Dosage: UNK
     Route: 048
     Dates: start: 19951016
  11. VALACICLOVIR HYDROCHLORIDE [Concomitant]
     Dosage: UNK
     Route: 048
     Dates: start: 20080501

REACTIONS (1)
  - DISTURBANCE IN ATTENTION [None]
